FAERS Safety Report 9011788 (Version 1)
Quarter: 2013Q1

REPORT INFORMATION
  Report Type: Report from Study
  Country: JP (occurrence: JP)
  Receive Date: 20130113
  Receipt Date: 20130113
  Transmission Date: 20140127
  Serious: Yes (Death)
  Sender: FDA-Public Use
  Company Number: JP-AMGEN-JPNCT2013001940

PATIENT
  Age: 80 Year
  Sex: Female

DRUGS (19)
  1. ETANERCEPT [Suspect]
     Indication: RHEUMATOID ARTHRITIS
     Dosage: 50 MG, QWK
     Route: 058
     Dates: start: 20090318, end: 20110728
  2. ETANERCEPT [Suspect]
     Dosage: 25 MG, 2 TIMES/WK
     Route: 058
     Dates: start: 20060906, end: 20081112
  3. TOCILIZUMAB [Concomitant]
     Indication: RHEUMATOID ARTHRITIS
     Dosage: 300 MG, (1 IN 4 WEEKS), MONTHLY
     Route: 041
     Dates: start: 20081126, end: 20090218
  4. RHEUMATREX                         /00113801/ [Concomitant]
     Indication: RHEUMATOID ARTHRITIS
     Dosage: UNK
     Route: 048
  5. PREDNISOLONE [Concomitant]
     Indication: RHEUMATOID ARTHRITIS
     Dosage: 5 MG, 1X/DAY
     Route: 048
  6. PREDNISOLONE [Concomitant]
     Dosage: MORE THAN 5 MG, 1X/DAY
     Route: 048
  7. DECADRON                           /00016001/ [Concomitant]
     Indication: RHEUMATOID ARTHRITIS
     Dosage: 2 MG, 1X/DAY
     Route: 014
     Dates: start: 20080903, end: 20080903
  8. DECADRON                           /00016001/ [Concomitant]
     Dosage: 2 MG, 1X/DAY
     Route: 014
     Dates: start: 20090121, end: 20090121
  9. DECADRON                           /00016001/ [Concomitant]
     Dosage: 2 MG, 1X/DAY
     Route: 014
     Dates: start: 20090318, end: 20090318
  10. KENACORT-A                         /00031902/ [Concomitant]
     Indication: RHEUMATOID ARTHRITIS
     Dosage: 20 MG, 1X/DAY
     Route: 014
     Dates: start: 20081210, end: 20081210
  11. VOLTAREN                           /00372301/ [Concomitant]
     Indication: RHEUMATOID ARTHRITIS
     Dosage: 25 MG, 1X/DAY
     Route: 054
  12. MOHRUS [Concomitant]
     Indication: RHEUMATOID ARTHRITIS
     Dosage: 4 DF, 1X/DAY
     Route: 061
  13. RENIVACE [Concomitant]
     Indication: HYPERTENSION
     Dosage: 5 MG, 1X/DAY
     Route: 048
  14. ARTIST [Concomitant]
     Indication: HYPERTENSION
     Dosage: 10 MG, 1X/DAY
     Route: 048
  15. ITOROL [Concomitant]
     Dosage: 40 MG, 1X/DAY
     Route: 048
  16. FAMOTIDINE [Concomitant]
     Indication: PROPHYLAXIS
     Dosage: 40 MG, 1X/DAY
     Route: 048
  17. FENOFIBRATE [Concomitant]
     Indication: HYPERLIPIDAEMIA
     Dosage: 5 MG, 1X/DAY
     Route: 048
  18. ACETYLSALICYLIC ACID [Concomitant]
     Indication: PROPHYLAXIS
     Dosage: 100 MG, 1X/DAY
     Route: 048
  19. INSULIN HUMAN INJECTION, ISOPHANE [Concomitant]
     Indication: DIABETES MELLITUS
     Dosage: 20 IU, 1X/DAY
     Route: 058

REACTIONS (4)
  - Multi-organ failure [Fatal]
  - Renal failure [Fatal]
  - Disseminated intravascular coagulation [Fatal]
  - Cardiac failure congestive [Fatal]
